FAERS Safety Report 9846108 (Version 2)
Quarter: 2014Q1

REPORT INFORMATION
  Report Type: Spontaneous
  Country: ZA (occurrence: ZA)
  Receive Date: 20140127
  Receipt Date: 20140220
  Transmission Date: 20141002
  Serious: Yes (Hospitalization)
  Sender: FDA-Public Use
  Company Number: ZA-NOVOPROD-398639

PATIENT
  Sex: Male
  Weight: 3 kg

DRUGS (3)
  1. NOVOMIX 30 FLEXPEN [Suspect]
     Indication: GESTATIONAL DIABETES
     Dosage: 44 IU, QD
     Route: 064
     Dates: start: 20130609, end: 20131026
  2. FOLIC ACID [Concomitant]
     Dosage: UNKNOWN
     Route: 064
  3. MULTIVITAMIN                       /00097801/ [Concomitant]
     Indication: PREGNANCY
     Dosage: UNKNOWN
     Route: 064

REACTIONS (3)
  - Premature baby [Recovered/Resolved]
  - Dyspnoea [Recovered/Resolved]
  - Foetal exposure during pregnancy [Recovered/Resolved]
